FAERS Safety Report 8518049-6 (Version None)
Quarter: 2012Q3

REPORT INFORMATION
  Report Type: 
  Country: None (occurrence: None)
  Receive Date: 20120718
  Receipt Date: 20110830
  Transmission Date: 20120928
  Serious: No
  Sender: FDA-Public Use
  Company Number: US-BRISTOL-MYERS SQUIBB COMPANY-15999782

PATIENT
  Sex: Male
  Weight: 84 kg

DRUGS (1)
  1. COUMADIN [Suspect]
     Indication: AORTIC VALVE REPLACEMENT
     Dosage: 1DF IS 5 TO 6.5MG HAD RECIEVED 8 BOXES

REACTIONS (1)
  - PRODUCT COUNTERFEIT [None]
